FAERS Safety Report 24221457 (Version 2)
Quarter: 2024Q3

REPORT INFORMATION
  Report Type: Spontaneous
  Country: CA (occurrence: CA)
  Receive Date: 20240819
  Receipt Date: 20240823
  Transmission Date: 20241017
  Serious: Yes (Other)
  Sender: SANDOZ
  Company Number: CA-SANDOZ-SDZ2024CA072544

PATIENT
  Age: 60 Year
  Sex: Female

DRUGS (37)
  1. BUPROPION [Suspect]
     Active Substance: BUPROPION
     Indication: Product used for unknown indication
     Dosage: 150 MG, QD
     Route: 065
  2. BUPROPION [Suspect]
     Active Substance: BUPROPION
     Dosage: 150 MG, BID
     Route: 065
  3. BUPROPION [Suspect]
     Active Substance: BUPROPION
     Dosage: UNK
     Route: 065
  4. BUPROPION [Suspect]
     Active Substance: BUPROPION
     Dosage: UNK
     Route: 065
  5. BUPROPION [Suspect]
     Active Substance: BUPROPION
     Dosage: UNK
     Route: 065
  6. CEFTRIAXONE [Suspect]
     Active Substance: CEFTRIAXONE\CEFTRIAXONE SODIUM
     Indication: Product used for unknown indication
     Dosage: 500 MG, POWDER FOR SOLUTION INTRAMUSCULAR
     Route: 065
  7. CEFUROXIME AXETIL [Suspect]
     Active Substance: CEFUROXIME AXETIL
     Indication: Product used for unknown indication
     Dosage: UNK
     Route: 065
  8. CALCIUM CARBONATE [Suspect]
     Active Substance: CALCIUM CARBONATE
     Dosage: 1 MG
     Route: 065
  9. CALCIUM CARBONATE [Suspect]
     Active Substance: CALCIUM CARBONATE
     Indication: Product used for unknown indication
     Dosage: 1 DF, QD
     Route: 065
  10. CEFUROXIME [Suspect]
     Active Substance: CEFUROXIME
     Indication: Product used for unknown indication
     Dosage: UNK
     Route: 065
  11. CICLESONIDE [Suspect]
     Active Substance: CICLESONIDE
     Indication: Product used for unknown indication
     Dosage: 2 DF, QD
     Route: 065
  12. CICLESONIDE [Suspect]
     Active Substance: CICLESONIDE
     Dosage: 2 DF, BID
     Route: 065
  13. CICLESONIDE [Suspect]
     Active Substance: CICLESONIDE
     Dosage: 2 DF
     Route: 065
  14. CICLESONIDE [Suspect]
     Active Substance: CICLESONIDE
     Dosage: 200 UG, BID
     Route: 065
  15. CITALOPRAM [Suspect]
     Active Substance: CITALOPRAM\CITALOPRAM HYDROBROMIDE
     Indication: Product used for unknown indication
     Dosage: 10 MG, QD
     Route: 065
  16. CITALOPRAM [Suspect]
     Active Substance: CITALOPRAM\CITALOPRAM HYDROBROMIDE
     Dosage: 10 MG
     Route: 065
  17. CITALOPRAM HYDROBROMIDE [Suspect]
     Active Substance: CITALOPRAM HYDROBROMIDE
     Indication: Product used for unknown indication
     Dosage: 10 MG
     Route: 065
  18. ERGOCALCIFEROL [Suspect]
     Active Substance: ERGOCALCIFEROL
     Indication: Product used for unknown indication
     Dosage: 1 DF, QD
     Route: 065
  19. ERGOCALCIFEROL [Suspect]
     Active Substance: ERGOCALCIFEROL
     Dosage: 1 DF, QD
     Route: 065
  20. FLUTICASONE [Suspect]
     Active Substance: FLUTICASONE
     Indication: Product used for unknown indication
     Dosage: UNK
     Route: 065
  21. FLUTICASONE [Suspect]
     Active Substance: FLUTICASONE
     Dosage: UNK
     Route: 065
  22. LORAZEPAM [Suspect]
     Active Substance: LORAZEPAM
     Indication: Product used for unknown indication
     Dosage: 1 MG, QD
     Route: 065
  23. LORAZEPAM [Suspect]
     Active Substance: LORAZEPAM
     Dosage: 1 MG
     Route: 065
  24. LORAZEPAM [Suspect]
     Active Substance: LORAZEPAM
     Dosage: UNK
     Route: 065
  25. MOXIFLOXACIN [Suspect]
     Active Substance: MOXIFLOXACIN
     Indication: Product used for unknown indication
     Dosage: 400 MG, QD
     Route: 058
  26. NICOTINE [Suspect]
     Active Substance: NICOTINE
     Indication: Product used for unknown indication
     Dosage: UNK
     Route: 065
  27. NICOTINE [Suspect]
     Active Substance: NICOTINE
     Dosage: UNK
     Route: 065
  28. PREDNISONE [Suspect]
     Active Substance: PREDNISONE
     Dosage: 25 MG, QD
     Route: 065
  29. PREDNISONE [Suspect]
     Active Substance: PREDNISONE
     Indication: Product used for unknown indication
     Dosage: 50 MG, QD
     Route: 065
  30. PREDNISONE [Suspect]
     Active Substance: PREDNISONE
     Dosage: UNK
     Route: 065
  31. RABEPRAZOLE [Suspect]
     Active Substance: RABEPRAZOLE
     Indication: Product used for unknown indication
     Dosage: 20 MG, BID
     Route: 065
  32. RABEPRAZOLE [Suspect]
     Active Substance: RABEPRAZOLE
     Dosage: 20 MG
     Route: 065
  33. ALBUTEROL SULFATE [Suspect]
     Active Substance: ALBUTEROL SULFATE
     Indication: Asthma
     Dosage: UNK
     Route: 065
  34. UMECLIDINIUM BROMIDE [Suspect]
     Active Substance: UMECLIDINIUM BROMIDE
     Indication: Product used for unknown indication
     Dosage: 2 DF
     Route: 065
  35. UMECLIDINIUM BROMIDE [Suspect]
     Active Substance: UMECLIDINIUM BROMIDE
     Dosage: 25 MG, QD
     Route: 065
  36. UMECLIDINIUM BROMIDE [Suspect]
     Active Substance: UMECLIDINIUM BROMIDE
     Dosage: UNK
     Route: 065
  37. VITAMIN D [Suspect]
     Active Substance: VITAMIN D NOS
     Indication: Product used for unknown indication
     Dosage: UNK
     Route: 065

REACTIONS (16)
  - Abdominal pain [Unknown]
  - Asthma [Unknown]
  - Cough [Unknown]
  - Full blood count abnormal [Unknown]
  - Abdominal distension [Unknown]
  - Hypersensitivity [Unknown]
  - Myalgia [Unknown]
  - Nicotine dependence [Unknown]
  - Obstructive airways disorder [Unknown]
  - Secondary immunodeficiency [Unknown]
  - Sputum purulent [Unknown]
  - Wheezing [Unknown]
  - Constipation [Unknown]
  - Fatigue [Unknown]
  - Drug intolerance [Unknown]
  - Therapeutic product effect incomplete [Unknown]
